FAERS Safety Report 4498945-X (Version None)
Quarter: 2004Q4

REPORT INFORMATION
  Report Type: 
  Country: None (occurrence: None)
  Receive Date: 20041108
  Receipt Date: 20041025
  Transmission Date: 20050328
  Serious: Yes (Disabling, Other)
  Sender: FDA-Public Use
  Company Number: 2004237234JP

PATIENT
  Age: 63 Year
  Sex: Male

DRUGS (4)
  1. CYTOTEC(MISOPROSTOL) TABLET [Suspect]
     Indication: PROPHYLAXIS AGAINST GASTROINTESTINAL ULCER
     Dosage: 1 DF, TID, ORAL
     Route: 048
     Dates: start: 20040225, end: 20040318
  2. CYTOTEC(MISOPROSTOL) TABLET [Suspect]
     Indication: PROPHYLAXIS AGAINST GASTROINTESTINAL ULCER
     Dosage: 1 DF, TID, ORAL
     Route: 048
     Dates: start: 20040816, end: 20040924
  3. PEON (ZALTOPROFEN) [Concomitant]
  4. METHYCOBAL (MECOBALAMIN) [Concomitant]

REACTIONS (1)
  - ANOSMIA [None]
